FAERS Safety Report 4881810-3 (Version None)
Quarter: 2006Q1

REPORT INFORMATION
  Report Type: 
  Country: None (occurrence: None)
  Receive Date: 20060117
  Receipt Date: 20060110
  Transmission Date: 20060701
  Serious: Yes (Other)
  Sender: FDA-Public Use
  Company Number: US-JNJFOC-20051004999

PATIENT
  Sex: Female
  Weight: 68.95 kg

DRUGS (1)
  1. REMICADE [Suspect]
     Indication: RHEUMATOID ARTHRITIS
     Route: 042

REACTIONS (8)
  - APHONIA [None]
  - DEHYDRATION [None]
  - FLUID RETENTION [None]
  - HERNIA [None]
  - OEDEMA PERIPHERAL [None]
  - PAIN [None]
  - PHARYNGOLARYNGEAL PAIN [None]
  - VOMITING [None]
